FAERS Safety Report 8337412-X (Version None)
Quarter: 2012Q2

REPORT INFORMATION
  Report Type: 
  Country: None (occurrence: None)
  Receive Date: 20120504
  Receipt Date: 20070105
  Transmission Date: 20120825
  Serious: Yes (Life-Threatening, Hospitalization, Other)
  Sender: FDA-Public Use
  Company Number: FR-ROCHE-477392

PATIENT
  Sex: Female

DRUGS (3)
  1. AMIKACIN [Concomitant]
  2. PIPERACILLIN AND TAZOBACTAM [Suspect]
     Indication: PRODUCT USED FOR UNKNOWN INDICATION
     Route: 065
  3. ROCEPHIN [Suspect]
     Indication: PYELONEPHRITIS
     Dosage: STOPPED AFTER FOUR INJECTIONS.
     Route: 065
     Dates: start: 20061223, end: 20061227

REACTIONS (5)
  - BONE MARROW FAILURE [None]
  - HERPES ZOSTER OPHTHALMIC [None]
  - PARVOVIRUS B19 TEST POSITIVE [None]
  - DRUG HYPERSENSITIVITY [None]
  - SIGMOIDITIS [None]
